FAERS Safety Report 23079794 (Version 1)
Quarter: 2023Q4

REPORT INFORMATION
  Report Type: Spontaneous
  Country: US (occurrence: US)
  Receive Date: 20231018
  Receipt Date: 20231018
  Transmission Date: 20240109
  Serious: No
  Sender: FDA-Public Use
  Company Number: US-PFIZER INC-202300328312

PATIENT
  Age: 71 Year
  Sex: Female

DRUGS (2)
  1. PAXLOVID [Suspect]
     Active Substance: NIRMATRELVIR\RITONAVIR
     Indication: COVID-19 treatment
     Dosage: UNK
     Dates: start: 20231003, end: 20231007
  2. MUCINEX [Concomitant]
     Active Substance: GUAIFENESIN
     Dates: start: 20231001, end: 20231002

REACTIONS (3)
  - COVID-19 [Unknown]
  - Disease recurrence [Unknown]
  - Dysgeusia [Unknown]

NARRATIVE: CASE EVENT DATE: 20231001
